FAERS Safety Report 5103205-X (Version None)
Quarter: 2006Q3

REPORT INFORMATION
  Report Type: 
  Country: None (occurrence: None)
  Receive Date: 20060912
  Receipt Date: 20060912
  Transmission Date: 20061208
  Serious: Yes (Hospitalization)
  Sender: FDA-Public Use
  Company Number: None

PATIENT
  Age: 40 Year
  Sex: Male

DRUGS (1)
  1. SULFACETAMID/SULFUR LOTION [Suspect]
     Indication: ECZEMA
     Dosage: BID TO SCIU

REACTIONS (1)
  - RASH GENERALISED [None]
